APPROVED DRUG PRODUCT: PHYTONADIONE
Active Ingredient: PHYTONADIONE
Strength: 5MG
Dosage Form/Route: TABLET;ORAL
Application: A213329 | Product #001 | TE Code: AB
Applicant: SCIEGEN PHARMACEUTICALS INC
Approved: Jul 28, 2023 | RLD: No | RS: No | Type: RX